FAERS Safety Report 14934239 (Version 1)
Quarter: 2018Q2

REPORT INFORMATION
  Report Type: Spontaneous
  Country: JP (occurrence: JP)
  Receive Date: 20180524
  Receipt Date: 20180524
  Transmission Date: 20180711
  Serious: Yes (Disabling, Other)
  Sender: FDA-Public Use
  Company Number: JP-ASTRAZENECA-2015SE17607

PATIENT
  Age: 26 Year
  Sex: Female

DRUGS (11)
  1. SEROQUEL [Suspect]
     Active Substance: QUETIAPINE FUMARATE
     Indication: PRODUCT USED FOR UNKNOWN INDICATION
     Route: 048
     Dates: start: 200204, end: 200205
  2. SENNAL [Concomitant]
     Dates: start: 20020216, end: 20020414
  3. SEROQUEL [Suspect]
     Active Substance: QUETIAPINE FUMARATE
     Indication: PRODUCT USED FOR UNKNOWN INDICATION
     Route: 048
     Dates: start: 200205, end: 200401
  4. ZOTEPINE [Suspect]
     Active Substance: ZOTEPINE
     Indication: PRODUCT USED FOR UNKNOWN INDICATION
     Route: 048
     Dates: start: 200205, end: 200401
  5. LEXIN [Concomitant]
     Active Substance: CEPHALEXIN
     Route: 048
     Dates: start: 20020320, end: 20020414
  6. ORAP [Suspect]
     Active Substance: PIMOZIDE
     Indication: HALLUCINATION, AUDITORY
     Route: 048
     Dates: start: 20020320
  7. UBRETID [Concomitant]
     Active Substance: DISTIGMINE BROMIDE
     Dates: start: 20020216, end: 20020414
  8. RIVOTRIL [Concomitant]
     Active Substance: CLONAZEPAM
     Route: 048
     Dates: start: 20020218, end: 20020414
  9. SENIRAN [Concomitant]
     Active Substance: BROMAZEPAM
     Route: 048
     Dates: start: 20020320, end: 20020414
  10. ORAP [Suspect]
     Active Substance: PIMOZIDE
     Indication: HALLUCINATION, AUDITORY
     Route: 048
     Dates: start: 20020320, end: 20040414
  11. CONTOMIN [Concomitant]
     Active Substance: CHLORPROMAZINE
     Route: 048
     Dates: start: 20020318, end: 20020414

REACTIONS (1)
  - Dystonia [Unknown]
